FAERS Safety Report 13251888 (Version 1)
Quarter: 2017Q1

REPORT INFORMATION
  Report Type: Other
  Country: IR (occurrence: IR)
  Receive Date: 20170220
  Receipt Date: 20170220
  Transmission Date: 20170428
  Serious: Yes (Death)
  Sender: FDA-Public Use
  Company Number: IR-GE HEALTHCARE LIFE SCIENCES-OMPQ-PR-1701S-0129

PATIENT

DRUGS (1)
  1. OMNIPAQUE [Suspect]
     Active Substance: IOHEXOL
     Indication: HEPATIC CIRRHOSIS
     Dosage: 100 ML, SINGLE
     Route: 042
     Dates: start: 20161225, end: 20161225

REACTIONS (2)
  - Cyanosis [Fatal]
  - Cardio-respiratory arrest [Fatal]

NARRATIVE: CASE EVENT DATE: 20161225
